FAERS Safety Report 14456404 (Version 3)
Quarter: 2018Q1

REPORT INFORMATION
  Report Type: Spontaneous
  Country: CO (occurrence: CO)
  Receive Date: 20180130
  Receipt Date: 20180225
  Transmission Date: 20180509
  Serious: Yes (Other)
  Sender: FDA-Public Use
  Company Number: CO-009507513-1801COL009919

PATIENT
  Age: 19 Year
  Sex: Female
  Weight: 54 kg

DRUGS (2)
  1. IMPLANON [Suspect]
     Active Substance: ETONOGESTREL
     Indication: CONTRACEPTION
     Dosage: 1 DF, UNK
     Route: 059
     Dates: start: 20171201, end: 20180122
  2. IMPLANON [Suspect]
     Active Substance: ETONOGESTREL
     Dosage: 1 DF, UNK
     Route: 059
     Dates: start: 20180122

REACTIONS (4)
  - Implant site discharge [Recovering/Resolving]
  - Subcutaneous abscess [Recovering/Resolving]
  - Pain in extremity [Recovering/Resolving]
  - Implant site inflammation [Recovering/Resolving]

NARRATIVE: CASE EVENT DATE: 20180101
